FAERS Safety Report 19219212 (Version 2)
Quarter: 2021Q2

REPORT INFORMATION
  Report Type: Spontaneous
  Country: JP (occurrence: JP)
  Receive Date: 20210506
  Receipt Date: 20210615
  Transmission Date: 20210717
  Serious: Yes (Other)
  Sender: FDA-Public Use
  Company Number: JP-JNJFOC-20210458377

PATIENT
  Age: 74 Year
  Sex: Male
  Weight: 59 kg

DRUGS (9)
  1. DIMETICONE [Concomitant]
     Active Substance: DIMETHICONE
  2. TOARASET [Concomitant]
     Active Substance: ACETAMINOPHEN\TRAMADOL HYDROCHLORIDE
  3. PREGABALIN. [Concomitant]
     Active Substance: PREGABALIN
  4. UROGRAFIN [Suspect]
     Active Substance: DIATRIZOATE MEGLUMINE\DIATRIZOATE SODIUM
     Indication: CYSTOGRAM
     Dosage: DAILY DOSE 100 ML
     Dates: start: 20210422, end: 20210422
  5. MAGMITT [Concomitant]
     Active Substance: MAGNESIUM OXIDE
  6. LANSOPRAZOLE. [Concomitant]
     Active Substance: LANSOPRAZOLE
  7. GOOFICE [Concomitant]
     Active Substance: ELOBIXIBAT
  8. AMEZINIUM [Concomitant]
  9. XARELTO [Suspect]
     Active Substance: RIVAROXABAN
     Indication: PRODUCT USED FOR UNKNOWN INDICATION
     Dosage: UNK
     Route: 048
     Dates: end: 20210423

REACTIONS (4)
  - Infection [Unknown]
  - Seizure [Recovered/Resolved]
  - Haemorrhagic diathesis [Unknown]
  - Pyrexia [Unknown]

NARRATIVE: CASE EVENT DATE: 20210422
